FAERS Safety Report 7041195-3 (Version None)
Quarter: 2010Q4

REPORT INFORMATION
  Report Type: 
  Country: None (occurrence: None)
  Receive Date: 20101013
  Receipt Date: 20101008
  Transmission Date: 20110411
  Serious: Yes (Life-Threatening, Hospitalization, Other)
  Sender: FDA-Public Use
  Company Number: DE-BAYER-201041879GPV

PATIENT
  Age: 23 Year
  Sex: Female
  Weight: 60 kg

DRUGS (6)
  1. CIPROBAY HC [Suspect]
     Dosage: 1-2 X 2 TABLETS DAILY
     Route: 048
     Dates: start: 20100624, end: 20100625
  2. NOVAMINSULFON-RATIOPHARM [Suspect]
     Indication: PAIN
     Route: 042
     Dates: start: 20100624, end: 20100625
  3. NOVAMINSULFON-RATIOPHARM [Suspect]
     Dosage: UNIT DOSE: 750 MG
     Route: 048
     Dates: start: 20100625, end: 20100625
  4. NOVAMINSULFON-RATIOPHARM [Suspect]
     Route: 048
     Dates: start: 20100627, end: 20100629
  5. NOVAMINSULFON- LICHTENSTEIN [Suspect]
     Indication: PAIN
     Route: 048
     Dates: start: 20100627, end: 20100629
  6. BELARA [Concomitant]
     Indication: CONTRACEPTION
     Route: 048
     Dates: start: 20030101

REACTIONS (1)
  - RENAL FAILURE ACUTE [None]
